FAERS Safety Report 21669838 (Version 1)
Quarter: 2022Q4

REPORT INFORMATION
  Report Type: Spontaneous
  Country: CN (occurrence: CN)
  Receive Date: 20221201
  Receipt Date: 20221201
  Transmission Date: 20230113
  Serious: Yes (Hospitalization, Other)
  Sender: FDA-Public Use
  Company Number: CN-009507513-2211CHN009046

PATIENT
  Age: 7 Year
  Sex: Male
  Weight: 29 kg

DRUGS (4)
  1. INVANZ [Suspect]
     Active Substance: ERTAPENEM SODIUM
     Indication: Anti-infective therapy
     Dosage: 450 MG, BID, IV DRIP
     Route: 041
     Dates: start: 20221118, end: 20221119
  2. CEFTRIAXONE [Concomitant]
     Active Substance: CEFTRIAXONE
     Dosage: UNK
     Route: 041
     Dates: end: 20221118
  3. CEFIXIME [Concomitant]
     Active Substance: CEFIXIME
     Dosage: UNK
     Dates: start: 20221115, end: 20221116
  4. QING RE JIE DU [ANEMARRHENA ASPHODELOIDES RHIZOME;BUFFALO HORN;CALCIUM [Concomitant]
     Dosage: UNK
     Dates: start: 20221115, end: 20221116

REACTIONS (2)
  - Gastroenteritis [Unknown]
  - Anaphylactic shock [Recovering/Resolving]

NARRATIVE: CASE EVENT DATE: 20221101
